FAERS Safety Report 6251555-6 (Version None)
Quarter: 2009Q2

REPORT INFORMATION
  Report Type: 
  Country: None (occurrence: None)
  Receive Date: 20090630
  Receipt Date: 20090626
  Transmission Date: 20091009
  Serious: Yes (Other)
  Sender: FDA-Public Use
  Company Number: ES-WATSON-2009-04950

PATIENT
  Age: 54 Year
  Sex: Male

DRUGS (3)
  1. CYCLOSPORINE [Suspect]
     Indication: PROPHYLAXIS AGAINST TRANSPLANT REJECTION
     Dosage: 0.5-1.5 MG Q12
     Route: 042
  2. SIMVASTATIN [Suspect]
     Indication: MYOCARDIAL INFARCTION
     Dosage: 40 MG QD
     Route: 048
  3. RISPERIDONE [Suspect]
     Indication: HALLUCINATION, AUDITORY
     Dosage: 1 MG DAILY
     Route: 048

REACTIONS (3)
  - INHIBITORY DRUG INTERACTION [None]
  - RENAL FAILURE ACUTE [None]
  - RHABDOMYOLYSIS [None]
